FAERS Safety Report 7688905-X (Version None)
Quarter: 2011Q3

REPORT INFORMATION
  Report Type: 
  Country: None (occurrence: None)
  Receive Date: 20110817
  Receipt Date: 20110805
  Transmission Date: 20111222
  Serious: Yes (Hospitalization)
  Sender: FDA-Public Use
  Company Number: PHHY2011US72004

PATIENT
  Age: 26 Year
  Sex: Female

DRUGS (2)
  1. PITOCIN [Suspect]
     Dosage: 5 U, UNK
     Route: 042
  2. METHERGINE [Suspect]
     Dosage: 0.2 MG, UNK
     Route: 042

REACTIONS (9)
  - VISUAL ACUITY REDUCED [None]
  - RESTLESSNESS [None]
  - VISION BLURRED [None]
  - VISUAL ACUITY TESTS ABNORMAL [None]
  - MACULAR PIGMENTATION [None]
  - RETINAL EXUDATES [None]
  - RETINAL DETACHMENT [None]
  - VASOSPASM [None]
  - BLOOD PRESSURE INCREASED [None]
